FAERS Safety Report 22034625 (Version 1)
Quarter: 2023Q1

REPORT INFORMATION
  Report Type: Spontaneous
  Country: US (occurrence: None)
  Receive Date: 20230222
  Receipt Date: 20230222
  Transmission Date: 20230418
  Serious: No
  Sender: FDA-Public Use
  Company Number: None

PATIENT
  Age: 76 Year
  Sex: Female
  Weight: 79.38 kg

DRUGS (1)
  1. SULFAMETHOXAZOLE\TRIMETHOPRIM [Suspect]
     Active Substance: SULFAMETHOXAZOLE\TRIMETHOPRIM
     Indication: Cystitis
     Dosage: OTHER FREQUENCY : MORNING ;?
     Route: 048
     Dates: end: 20221217

REACTIONS (5)
  - Dizziness [None]
  - Tremor [None]
  - Pallor [None]
  - Tremor [None]
  - Blood glucose decreased [None]

NARRATIVE: CASE EVENT DATE: 20221127
